FAERS Safety Report 7843219-X (Version None)
Quarter: 2011Q4

REPORT INFORMATION
  Report Type: 
  Country: None (occurrence: None)
  Receive Date: 20111025
  Receipt Date: 20111020
  Transmission Date: 20120403
  Serious: No
  Sender: FDA-Public Use
  Company Number: US-PFIZER INC-2011254521

PATIENT
  Sex: Female
  Weight: 77.1 kg

DRUGS (1)
  1. PREMARIN [Suspect]
     Indication: MENOPAUSAL SYMPTOMS
     Dosage: 0.625 MG, 1X/DAY
     Dates: start: 20020101

REACTIONS (4)
  - DRUG DOSE OMISSION [None]
  - DRUG INEFFECTIVE [None]
  - HOT FLUSH [None]
  - NIGHT SWEATS [None]
